FAERS Safety Report 4782012-1 (Version None)
Quarter: 2005Q3

REPORT INFORMATION
  Report Type: 
  Country: None (occurrence: None)
  Receive Date: 20050928
  Receipt Date: 20050718
  Transmission Date: 20060218
  Serious: Yes (Hospitalization, Disabling)
  Sender: FDA-Public Use
  Company Number: US-MERCK-0507USA03034

PATIENT
  Age: 45 Year
  Sex: Female
  Weight: 127 kg

DRUGS (4)
  1. VIOXX [Suspect]
     Indication: ARTHRITIS
     Route: 048
     Dates: start: 19990601, end: 20040301
  2. VIOXX [Suspect]
     Route: 048
     Dates: start: 19990601, end: 20040301
  3. ASPIRIN [Concomitant]
     Route: 065
  4. PREMARIN [Concomitant]
     Route: 065

REACTIONS (5)
  - BLOOD PRESSURE [None]
  - BLOOD PRESSURE ABNORMAL [None]
  - LUNG DISORDER [None]
  - MYOCARDIAL INFARCTION [None]
  - PRESCRIBED OVERDOSE [None]
